FAERS Safety Report 6805028 (Version 3)
Quarter: 2013Q4

REPORT INFORMATION
  Report Type: Report from Study
  Country: BR (occurrence: BR)
  Receive Date: 20081106
  Receipt Date: 20131205
  Transmission Date: 20140711
  Serious: Yes (Disabling, Other)
  Sender: FDA-Public Use
  Company Number: PHHY2008BR26793

PATIENT
  Age: 57 Year
  Sex: Male
  Weight: 67 kg

DRUGS (4)
  1. DIOVAN HCT [Suspect]
     Indication: HYPERTENSION
     Dosage: 1 DF (80MG VALS/12.5MG HCT), BID (1 TABLET IN MORNIG AND 1 TABLET IN NIGHT)
     Route: 048
  2. VERAPAMIL [Concomitant]
     Indication: TACHYCARDIA
     Dosage: 240 MG, QD
     Route: 048
  3. TIMOPTOL [Concomitant]
     Indication: GLAUCOMA
     Dosage: 1 GTT (1DROP IN EACH EYE), DAILY
  4. DUO-TRAVATAN [Concomitant]
     Indication: GLAUCOMA
     Dosage: UNK UKN, UNK

REACTIONS (12)
  - Spinal fracture [Unknown]
  - Spinal pain [Not Recovered/Not Resolved]
  - Gait disturbance [Not Recovered/Not Resolved]
  - Posture abnormal [Not Recovered/Not Resolved]
  - Tendon rupture [Recovered/Resolved]
  - Fall [Recovered/Resolved]
  - Accident [Recovered/Resolved]
  - Blood pressure increased [Unknown]
  - Injury [Unknown]
  - Visual impairment [Unknown]
  - Pain [Unknown]
  - Blood pressure fluctuation [Not Recovered/Not Resolved]
